FAERS Safety Report 7169941-9 (Version None)
Quarter: 2010Q4

REPORT INFORMATION
  Report Type: 
  Country: None (occurrence: None)
  Receive Date: 20101217
  Receipt Date: 20101207
  Transmission Date: 20110411
  Serious: Yes (Hospitalization, Other)
  Sender: FDA-Public Use
  Company Number: JP-BRISTOL-MYERS SQUIBB COMPANY-15430515

PATIENT
  Age: 61 Year
  Sex: Female

DRUGS (3)
  1. TAXOL [Suspect]
     Indication: OVARIAN CANCER
     Route: 041
     Dates: start: 20070101, end: 20080101
  2. PARAPLATIN [Suspect]
     Indication: OVARIAN CANCER
     Route: 041
     Dates: start: 20070101
  3. FLUOROURACIL [Suspect]
     Indication: OVARIAN CANCER
     Dates: start: 20080101

REACTIONS (2)
  - OBLITERATIVE BRONCHIOLITIS [None]
  - PEMPHIGUS [None]
